FAERS Safety Report 5147272-6 (Version None)
Quarter: 2006Q4

REPORT INFORMATION
  Report Type: 
  Country: None (occurrence: None)
  Receive Date: 20061103
  Receipt Date: 20060818
  Transmission Date: 20070319
  Serious: Yes (Other)
  Sender: FDA-Public Use
  Company Number: 2005041220

PATIENT
  Age: 53 Year
  Sex: Male
  Weight: 90.7194 kg

DRUGS (5)
  1. CELEBREX [Suspect]
     Indication: ARTHRALGIA
     Dosage: 400 MG (200 MG, 2 IN 1 D), UNKNOWN
     Dates: start: 20030801
  2. BETAMETHASONE DIPROPIONATE (BETAMETHASONE DIPROPIONATE) [Concomitant]
  3. SYNVISC (HYALURONATE SODIUM) [Concomitant]
  4. TRAMADOL HYDROCHLORIDE (TRAMADOL HYDROCHLORIDE) TRAMADOL HYDROCHLORIDE [Concomitant]
  5. MALARONE (ATOVAQUONE, PROGUANIL HYDROCHLORIDE) MALARONE (ATOVAQUONE, P [Concomitant]

REACTIONS (10)
  - BLINDNESS UNILATERAL [None]
  - CATARACT [None]
  - CEREBROVASCULAR ACCIDENT [None]
  - MACULAR OEDEMA [None]
  - OPTIC ISCHAEMIC NEUROPATHY [None]
  - OSTEOARTHRITIS [None]
  - RETINAL HAEMORRHAGE [None]
  - RETINAL VEIN OCCLUSION [None]
  - THROMBOSIS [None]
  - VITREOUS FLOATERS [None]
